FAERS Safety Report 4697806-0 (Version None)
Quarter: 2005Q2

REPORT INFORMATION
  Report Type: 
  Country: None (occurrence: None)
  Receive Date: 20050623
  Receipt Date: 20050519
  Transmission Date: 20051028
  Serious: Yes (Other)
  Sender: FDA-Public Use
  Company Number: JP-JNJFOC-20050605506

PATIENT
  Age: 55 Year
  Sex: Female

DRUGS (5)
  1. REMICADE [Suspect]
     Route: 042
  2. REMICADE [Suspect]
     Indication: CROHN'S DISEASE
     Route: 042
  3. GANCICLOVIR [Concomitant]
  4. PREDNISOLONE [Concomitant]
  5. PREDNISOLONE ACETATE [Concomitant]

REACTIONS (1)
  - CYTOMEGALOVIRUS INFECTION [None]
